FAERS Safety Report 6985118-1 (Version None)
Quarter: 2010Q3

REPORT INFORMATION
  Report Type: 
  Country: None (occurrence: None)
  Receive Date: 20100915
  Receipt Date: 20100910
  Transmission Date: 20110219
  Serious: Yes (Hospitalization)
  Sender: FDA-Public Use
  Company Number: US-GILEAD-2010-0031786

PATIENT
  Sex: Female
  Weight: 94.886 kg

DRUGS (3)
  1. LETAIRIS [Suspect]
     Indication: PULMONARY ARTERIAL HYPERTENSION
     Route: 048
     Dates: start: 20100601
  2. VENTAVIS [Concomitant]
     Route: 055
  3. REVATIO [Concomitant]
     Route: 048

REACTIONS (1)
  - RECTAL HAEMORRHAGE [None]
